FAERS Safety Report 7635500-4 (Version None)
Quarter: 2011Q3

REPORT INFORMATION
  Report Type: 
  Country: None (occurrence: None)
  Receive Date: 20110718
  Receipt Date: 20110705
  Transmission Date: 20111222
  Serious: Yes (Hospitalization)
  Sender: FDA-Public Use
  Company Number: 1000022129

PATIENT
  Age: 69 Year
  Sex: Male

DRUGS (13)
  1. GLUCONORM (REPAGLINIDE) (TABLETS) (REPAGLINIDE) [Concomitant]
  2. AMIODARONE HCL [Suspect]
     Dosage: 200 MG (200 MG, 1 IN 1 D), ORAL
     Route: 048
  3. LASIX [Concomitant]
  4. LIPITOR (ATORVASTATIN CALCIUM) (TABLETS) (ATORVASTATIN CALCIUM) [Concomitant]
  5. OXAZEPAM (OXAZEPAM) (TABLETS) (OXAZEPAM) [Concomitant]
  6. ATIVAN [Concomitant]
  7. MICARDIS (TELMISARTAN) (TABLETS) (TELMISARTAN) [Concomitant]
  8. METFORMIN (METFORMIN) (TABLETS) (METFORMIN) [Concomitant]
  9. PLAVIX (CLOPIDOGREL SULFATE) (TABLETS) (CLOPIDOGREL SULFATE) [Concomitant]
  10. VITAMIN D (COLECALCIFEROL) (COLECALCIFEROL) [Concomitant]
  11. ESCITALOPRAM OXALATE [Suspect]
     Dosage: ORAL
     Route: 048
  12. ASA (ACETYLSALICYLIC ACID) (ACETYLSALICYLIC ACID) [Concomitant]
  13. SYNTHROID (LEVOTHYROXINE SODIUM) (LEVOTHYROXINE SODIUM) [Concomitant]

REACTIONS (2)
  - MOBILITY DECREASED [None]
  - PARKINSONISM [None]
